FAERS Safety Report 5044809-2 (Version None)
Quarter: 2006Q2

REPORT INFORMATION
  Report Type: 
  Country: None (occurrence: None)
  Receive Date: 20060601
  Receipt Date: 20060321
  Transmission Date: 20061013
  Serious: No
  Sender: FDA-Public Use
  Company Number: 2006-BP-02533BP

PATIENT
  Age: 46 Year
  Sex: Female

DRUGS (5)
  1. SPIRIVA [Suspect]
     Dosage: (18 MCG), IH
     Route: 055
  2. SPIRIVA [Suspect]
  3. SPIRIVA [Suspect]
  4. SPIRIVA [Suspect]
  5. SPIRIVA [Suspect]

REACTIONS (1)
  - DYSPNOEA EXACERBATED [None]
